FAERS Safety Report 13569933 (Version 3)
Quarter: 2017Q2

REPORT INFORMATION
  Report Type: Spontaneous
  Country: US (occurrence: US)
  Receive Date: 20170522
  Receipt Date: 20170628
  Transmission Date: 20170830
  Serious: Yes (Death, Hospitalization)
  Sender: FDA-Public Use
  Company Number: US-UNITED THERAPEUTICS-UNT-2017-007347

PATIENT
  Age: 84 Year
  Sex: Female
  Weight: 65.31 kg

DRUGS (5)
  1. ADCIRCA [Concomitant]
     Active Substance: TADALAFIL
     Indication: PRODUCT USED FOR UNKNOWN INDICATION
  2. OXYGEN. [Concomitant]
     Active Substance: OXYGEN
     Indication: PULMONARY HYPERTENSION
     Dosage: 2 LITRES
  3. PREDNISONE. [Concomitant]
     Active Substance: PREDNISONE
     Indication: SCLERODERMA
     Dosage: 5 MG, QD
     Route: 048
  4. REMODULIN [Suspect]
     Active Substance: TREPROSTINIL
     Indication: PULMONARY HYPERTENSION
     Dosage: 0.042 ?G/KG, CONTINUING
     Route: 041
     Dates: start: 20060329
  5. AMLODIPINE [Concomitant]
     Active Substance: AMLODIPINE BESYLATE
     Indication: PRODUCT USED FOR UNKNOWN INDICATION

REACTIONS (16)
  - Infection [Fatal]
  - Malaise [Unknown]
  - Diarrhoea [Unknown]
  - Cystocele [Unknown]
  - Dysuria [Unknown]
  - Suprapubic pain [Unknown]
  - Hypotension [Unknown]
  - Vaginal discharge [Unknown]
  - Asthenia [Unknown]
  - Oedema [Unknown]
  - Deafness [Unknown]
  - Flank pain [Unknown]
  - White blood cell count decreased [Unknown]
  - Chest pain [Unknown]
  - Atrial fibrillation [Fatal]
  - Decreased appetite [Unknown]

NARRATIVE: CASE EVENT DATE: 20170515
